FAERS Safety Report 5123334-4 (Version None)
Quarter: 2006Q4

REPORT INFORMATION
  Report Type: 
  Country: None (occurrence: None)
  Receive Date: 20061005
  Receipt Date: 20060925
  Transmission Date: 20070319
  Serious: Yes (Life-Threatening)
  Sender: FDA-Public Use
  Company Number: HQWYE244127SEP06

PATIENT
  Age: 78 Year
  Sex: Female

DRUGS (9)
  1. MYLOTARG [Suspect]
     Indication: ACUTE MYELOID LEUKAEMIA RECURRENT
     Dosage: SEE IMAGE
     Route: 041
     Dates: start: 20060427, end: 20060427
  2. MYLOTARG [Suspect]
     Indication: ACUTE MYELOID LEUKAEMIA RECURRENT
     Dosage: SEE IMAGE
     Route: 041
     Dates: start: 20060511, end: 20060511
  3. AMLODIPINE BESYLATE [Concomitant]
  4. LOSARTAN POTASSIUM [Concomitant]
  5. SULFAMETHOXAZOLE + TRIMETHOPRIM [Concomitant]
  6. FLUCONAZOLE [Concomitant]
  7. FAMOTIDINE [Concomitant]
  8. MUCOSTA (REBAMIPIDE) [Concomitant]
  9. POLYMYXIN B SULFATE [Concomitant]

REACTIONS (16)
  - ALANINE AMINOTRANSFERASE INCREASED [None]
  - ANAEMIA [None]
  - ASCITES [None]
  - ASPARTATE AMINOTRANSFERASE INCREASED [None]
  - BLOOD ALKALINE PHOSPHATASE INCREASED [None]
  - CONJUNCTIVAL HAEMORRHAGE [None]
  - FEBRILE NEUTROPENIA [None]
  - HAEMATURIA [None]
  - HEPATOMEGALY [None]
  - MALAISE [None]
  - NAUSEA [None]
  - NEUTROPHIL COUNT DECREASED [None]
  - PERIORBITAL HAEMATOMA [None]
  - PLATELET COUNT DECREASED [None]
  - VOMITING [None]
  - WEIGHT INCREASED [None]
